FAERS Safety Report 21881632 (Version 1)
Quarter: 2023Q1

REPORT INFORMATION
  Report Type: Report from Study
  Country: CO (occurrence: CO)
  Receive Date: 20230119
  Receipt Date: 20230119
  Transmission Date: 20230417
  Serious: Yes (Death, Hospitalization)
  Sender: FDA-Public Use
  Company Number: CO-ABBVIE-4274571

PATIENT
  Age: 73 Year
  Sex: Male
  Weight: 50 kg

DRUGS (3)
  1. SKYRIZI [Suspect]
     Active Substance: RISANKIZUMAB-RZAA
     Indication: Psoriasis
     Route: 058
     Dates: start: 20210625, end: 20220526
  2. LOSARTAN [Concomitant]
     Active Substance: LOSARTAN
     Indication: Blood pressure abnormal
     Route: 048
     Dates: end: 20221206
  3. AMLODIP [Concomitant]
     Indication: Blood pressure abnormal
     Dosage: 5 MILLIGRAM
     Route: 048
     Dates: end: 20221206

REACTIONS (5)
  - Death [Fatal]
  - Bacterial infection [Unknown]
  - Discouragement [Not Recovered/Not Resolved]
  - Decreased appetite [Not Recovered/Not Resolved]
  - Central venous catheterisation [Not Recovered/Not Resolved]

NARRATIVE: CASE EVENT DATE: 20221028
